FAERS Safety Report 9718145 (Version 2)
Quarter: 2013Q4

REPORT INFORMATION
  Report Type: Spontaneous
  Country: US (occurrence: None)
  Receive Date: 20131125
  Receipt Date: 20131204
  Transmission Date: 20140711
  Serious: Yes (Hospitalization)
  Sender: FDA-Public Use
  Company Number: 7251055

PATIENT
  Age: 67 Year
  Sex: Female

DRUGS (5)
  1. LEVOTHYROXINE [Suspect]
     Indication: PRODUCT USED FOR UNKNOWN INDICATION
  2. CARVEDILOL [Suspect]
     Indication: PROPHYLAXIS
     Dosage: 3.125 MG, 2 IN 1 D STOPPED
  3. CARVEDILOL [Suspect]
     Indication: PORTAL HYPERTENSION
     Dosage: 3.125 MG, 2 IN 1 D STOPPED
  4. AMLODIPINE (AMLODIPINE) [Concomitant]
  5. ASPIRIN/00002701/ (ACETYLSALICYLIC ACID) [Concomitant]

REACTIONS (15)
  - Hepatitis [None]
  - Abdominal pain [None]
  - Nausea [None]
  - Fatigue [None]
  - Vomiting [None]
  - Change of bowel habit [None]
  - Pyrexia [None]
  - Weight decreased [None]
  - Drug-induced liver injury [None]
  - Cholelithiasis [None]
  - Gallbladder disorder [None]
  - Localised intraabdominal fluid collection [None]
  - Liver injury [None]
  - Hepatic necrosis [None]
  - Drug-induced liver injury [None]
